FAERS Safety Report 20706205 (Version 1)
Quarter: 2022Q2

REPORT INFORMATION
  Report Type: Spontaneous
  Country: US (occurrence: US)
  Receive Date: 20220413
  Receipt Date: 20220413
  Transmission Date: 20220720
  Serious: Yes (Other)
  Sender: FDA-Public Use
  Company Number: US-SLATE RUN PHARMACEUTICALS-22US001022

PATIENT

DRUGS (1)
  1. VANCOMYCIN HYDROCHLORIDE [Suspect]
     Active Substance: VANCOMYCIN HYDROCHLORIDE
     Indication: Cellulitis
     Dosage: UNK

REACTIONS (8)
  - Arteritis [Unknown]
  - Vascular device infection [Unknown]
  - Fat necrosis [Unknown]
  - Necrosis of artery [Unknown]
  - Purulent discharge [Unknown]
  - Septic embolus [Unknown]
  - Staphylococcal bacteraemia [Unknown]
  - Treatment failure [Unknown]
